FAERS Safety Report 21501662 (Version 1)
Quarter: 2022Q4

REPORT INFORMATION
  Report Type: Spontaneous
  Country: US (occurrence: None)
  Receive Date: 20221024
  Receipt Date: 20221024
  Transmission Date: 20230113
  Serious: No
  Sender: FDA-Public Use
  Company Number: None

PATIENT
  Age: 58 Year
  Sex: Female

DRUGS (20)
  1. ETOPOSIDE [Suspect]
     Active Substance: ETOPOSIDE
     Indication: Lung neoplasm malignant
     Dosage: FREQUENCY : DAILY;?
     Route: 048
     Dates: start: 20220923
  2. ALBUTEROL SULFATE [Concomitant]
  3. AMLODIPINE BESYLATE [Concomitant]
  4. CARBOPLATIN [Concomitant]
  5. DEXAMETHASONE [Concomitant]
  6. DUPIXENT [Concomitant]
  7. SUBSTANEOUS [Concomitant]
  8. ESCITALOPRAM [Concomitant]
  9. HYDROXYZINE [Concomitant]
  10. IPRATROPLUM-ALBUTEROL [Concomitant]
  11. LEVOTHYROXINE [Concomitant]
  12. MECLIZINE [Concomitant]
  13. METOPROLOL [Concomitant]
  14. SUCCINATE ER [Concomitant]
  15. MS CONTIN [Concomitant]
  16. ONDANSETRON [Concomitant]
  17. OXYCODONE [Concomitant]
  18. PREDNISONE [Concomitant]
  19. SPIRIVA [Concomitant]
  20. TRELEGY [Concomitant]

REACTIONS (1)
  - Hospice care [None]
